FAERS Safety Report 10184903 (Version 1)
Quarter: 2014Q2

REPORT INFORMATION
  Report Type: Spontaneous
  Country: US (occurrence: None)
  Receive Date: 20140519
  Receipt Date: 20140519
  Transmission Date: 20141212
  Serious: Yes (Death)
  Sender: FDA-Public Use
  Company Number: 2014P1004032

PATIENT
  Age: 29 Year
  Sex: Male

DRUGS (7)
  1. HYDROMORPHONE [Suspect]
     Indication: HEADACHE
     Route: 042
  2. MORPHINE SULFATE [Suspect]
     Indication: HEADACHE
     Route: 042
  3. CODEINE [Suspect]
     Indication: HEADACHE
     Route: 048
  4. HYDROCODONE [Suspect]
     Indication: HEADACHE
  5. ACETAMINOPHEN [Concomitant]
  6. METOCLOPRAMIDE [Concomitant]
  7. IBUPROFEN [Concomitant]

REACTIONS (4)
  - Sudden death [None]
  - Breathing-related sleep disorder [None]
  - Headache [None]
  - Urinary incontinence [None]
